FAERS Safety Report 5621997-8 (Version None)
Quarter: 2008Q1

REPORT INFORMATION
  Report Type: 
  Country: None (occurrence: None)
  Receive Date: 20080206
  Receipt Date: 20080121
  Transmission Date: 20080703
  Serious: Yes (Other)
  Sender: FDA-Public Use
  Company Number: 2008JP000388

PATIENT
  Age: 15 Year
  Sex: Male
  Weight: 34 kg

DRUGS (8)
  1. PROGRAF [Suspect]
     Indication: SMALL INTESTINE TRANSPLANT
     Dosage: ORAL
     Route: 048
  2. ZENAPAX [Suspect]
     Indication: SMALL INTESTINE TRANSPLANT
  3. PREDNISONE [Suspect]
     Indication: SMALL INTESTINE TRANSPLANT
  4. MYCOPHENOLATE MOFETIL [Suspect]
     Indication: SMALL INTESTINE TRANSPLANT
  5. ANTIBIOTICS [Concomitant]
  6. ANTIVIRALS [Concomitant]
  7. ANTIFUNGALS [Concomitant]
  8. HUMAN GROWTH HORMONE, RECOMBINANT (SOMATROPIN) [Concomitant]

REACTIONS (3)
  - CYTOMEGALOVIRUS ENTERITIS [None]
  - DRUG INEFFECTIVE [None]
  - TRANSPLANT REJECTION [None]
